FAERS Safety Report 15591146 (Version 4)
Quarter: 2019Q1

REPORT INFORMATION
  Report Type: Report from Study
  Country: CA (occurrence: CA)
  Receive Date: 20181107
  Receipt Date: 20190117
  Transmission Date: 20190417
  Serious: Yes (Hospitalization)
  Sender: FDA-Public Use
  Company Number: CA-JNJFOC-20181102704

PATIENT
  Age: 22 Year
  Sex: Female

DRUGS (1)
  1. STELARA [Suspect]
     Active Substance: USTEKINUMAB
     Indication: CROHN^S DISEASE
     Dosage: STRENGTH = 90 MG
     Route: 058
     Dates: start: 20180517

REACTIONS (7)
  - Frequent bowel movements [Recovered/Resolved]
  - General physical health deterioration [Recovered/Resolved]
  - Abdominal pain [Recovering/Resolving]
  - Intestinal resection [Unknown]
  - Off label use [Unknown]
  - Product use issue [Unknown]
  - Scar [Unknown]

NARRATIVE: CASE EVENT DATE: 20180517
